FAERS Safety Report 4811165-1 (Version None)
Quarter: 2005Q4

REPORT INFORMATION
  Report Type: 
  Country: None (occurrence: None)
  Receive Date: 20051027
  Receipt Date: 20051018
  Transmission Date: 20060501
  Serious: Yes (Disabling)
  Sender: FDA-Public Use
  Company Number: 2005AC01639

PATIENT
  Age: 78 Year
  Sex: Female

DRUGS (3)
  1. MARCAINE [Suspect]
     Route: 037
  2. LEVOFLOXACIN [Concomitant]
  3. MORPHINE [Concomitant]

REACTIONS (2)
  - PARALYSIS FLACCID [None]
  - PARAPLEGIA [None]
